FAERS Safety Report 12122173 (Version 2)
Quarter: 2016Q2

REPORT INFORMATION
  Report Type: Report from Study
  Country: US (occurrence: US)
  Receive Date: 20160226
  Receipt Date: 20160615
  Transmission Date: 20160815
  Serious: Yes (Hospitalization)
  Sender: FDA-Public Use
  Company Number: US-ACTELION-A-US2016-130884

PATIENT
  Age: 53 Year
  Sex: Female

DRUGS (3)
  1. VELETRI [Suspect]
     Active Substance: EPOPROSTENOL
     Indication: PULMONARY ARTERIAL HYPERTENSION
     Dosage: 30 NG/KG, PER MIN
     Route: 042
     Dates: start: 20150422
  2. RIOCIGUAT [Concomitant]
     Active Substance: RIOCIGUAT
  3. AMBRISENTAN [Concomitant]
     Active Substance: AMBRISENTAN

REACTIONS (16)
  - Urine odour abnormal [Unknown]
  - Oropharyngeal pain [Unknown]
  - Diarrhoea [Unknown]
  - Thyroid hormones increased [Unknown]
  - Abdominal discomfort [Unknown]
  - Nasopharyngitis [Unknown]
  - Urinary tract infection [Unknown]
  - Rash papular [Unknown]
  - Orthosis user [Unknown]
  - Wheezing [Unknown]
  - Abdominal pain [Unknown]
  - Vomiting [Unknown]
  - Pneumonia [Unknown]
  - Pollakiuria [Unknown]
  - Rhinorrhoea [Unknown]
  - Headache [Unknown]

NARRATIVE: CASE EVENT DATE: 201510
